FAERS Safety Report 7423678-7 (Version None)
Quarter: 2011Q2

REPORT INFORMATION
  Report Type: 
  Country: None (occurrence: None)
  Receive Date: 20110413
  Receipt Date: 20110413
  Transmission Date: 20111010
  Serious: No
  Sender: FDA-Public Use
  Company Number: None

PATIENT
  Age: 57 Year
  Sex: Male
  Weight: 80.2 kg

DRUGS (1)
  1. FENTANYL [Suspect]
     Dosage: 75 MCG OTHER OTHER
     Dates: start: 20101118, end: 20101118

REACTIONS (6)
  - ASTHENIA [None]
  - DIZZINESS [None]
  - SEDATION [None]
  - CONFUSIONAL STATE [None]
  - GAIT DISTURBANCE [None]
  - DISORIENTATION [None]
